FAERS Safety Report 17073902 (Version 1)
Quarter: 2019Q4

REPORT INFORMATION
  Report Type: Report from Study
  Country: US (occurrence: US)
  Receive Date: 20191126
  Receipt Date: 20191126
  Transmission Date: 20200122
  Serious: Yes (Hospitalization)
  Sender: FDA-Public Use
  Company Number: US-ROCHE-2474057

PATIENT
  Sex: Female

DRUGS (21)
  1. ACETYLCYSTEINE. [Concomitant]
     Active Substance: ACETYLCYSTEINE
     Dosage: 2ML BY NEBULIZATION
     Route: 045
  2. SENNOSIDES. [Concomitant]
     Active Substance: SENNOSIDES
     Route: 048
  3. ESOMEPRAZOLE. [Concomitant]
     Active Substance: ESOMEPRAZOLE MAGNESIUM
     Dosage: BEFORE BREAK FAST
     Route: 048
  4. METOCLOPRAMIDE. [Concomitant]
     Active Substance: METOCLOPRAMIDE
     Route: 065
  5. CELLCEPT [Suspect]
     Active Substance: MYCOPHENOLATE MOFETIL\MYCOPHENOLATE MOFETIL HYDROCHLORIDE
     Indication: PRODUCT USED FOR UNKNOWN INDICATION
     Dosage: 3.8 ML (760 MG TOTAL) BY G-TUBE 2 TIMES DAY
     Route: 050
  6. URSODIOL. [Concomitant]
     Active Substance: URSODIOL
     Dosage: BY G-TUBE DAILY
     Route: 065
  7. AMLODIPINE [Concomitant]
     Active Substance: AMLODIPINE BESYLATE
     Route: 065
  8. MAGNESIUM OXIDE. [Concomitant]
     Active Substance: MAGNESIUM OXIDE
     Route: 065
  9. FUROSEMIDE. [Concomitant]
     Active Substance: FUROSEMIDE
     Route: 065
  10. AZITHROMYCIN ANHYDROUS. [Concomitant]
     Active Substance: AZITHROMYCIN ANHYDROUS
     Route: 048
  11. ASPIRIN [ACETYLSALICYLIC ACID] [Concomitant]
     Active Substance: ASPIRIN
     Route: 065
  12. LACTOBACILLUS [Concomitant]
     Active Substance: LACTOBACILLUS ACIDOPHILUS
     Dosage: 1 MILLION CELL TABLET
     Route: 065
  13. VALCYTE [Suspect]
     Active Substance: VALGANCICLOVIR HYDROCHLORIDE
     Indication: LUNG TRANSPLANT
     Dosage: ^9 ML BY G-TUBE ROUTE 2 TIMES A DAY^ 50MG/ML ORAL SOLN
     Route: 050
  14. DOCUSATE [Concomitant]
     Active Substance: DOCUSATE
     Route: 048
  15. VORICONAZOLE. [Concomitant]
     Active Substance: VORICONAZOLE
     Route: 048
  16. IPRATROPIUM [Concomitant]
     Active Substance: IPRATROPIUM
     Dosage: BY NEBULIZATION DAILY
     Route: 045
  17. CHOLECALCIFEROLUM [Concomitant]
     Dosage: 5000 UNIT TABLET BY G-TUBE DAILY
     Route: 065
  18. TACROLIMUS. [Concomitant]
     Active Substance: TACROLIMUS
     Route: 065
  19. PREDNISONE. [Concomitant]
     Active Substance: PREDNISONE
     Route: 065
  20. ATOVAQUONE. [Concomitant]
     Active Substance: ATOVAQUONE
     Route: 065
  21. DIGOXIN. [Concomitant]
     Active Substance: DIGOXIN
     Route: 065

REACTIONS (9)
  - Gastrooesophageal reflux disease [Recovering/Resolving]
  - Physical deconditioning [Unknown]
  - Intentional product use issue [Unknown]
  - Off label use [Unknown]
  - Organising pneumonia [Recovered/Resolved]
  - Left ventricular dysfunction [Recovering/Resolving]
  - Pulmonary oedema [Recovered/Resolved]
  - Malnutrition [Unknown]
  - Oesophageal motility disorder [Recovering/Resolving]
